FAERS Safety Report 5535089-X (Version None)
Quarter: 2007Q4

REPORT INFORMATION
  Report Type: 
  Country: None (occurrence: None)
  Receive Date: 20071203
  Receipt Date: 20071119
  Transmission Date: 20080405
  Serious: Yes (Other)
  Sender: FDA-Public Use
  Company Number: 17909

PATIENT
  Age: 9 Year
  Sex: Female
  Weight: 18.6 kg

DRUGS (11)
  1. METHOTREXATE [Suspect]
     Dosage: 12.5 MG WEEKLY SC
     Route: 058
     Dates: start: 19980615
  2. DICLOFENAC [Suspect]
     Dosage: 75 MG PO
     Route: 048
     Dates: start: 20061005
  3. PREDNISOLONE [Suspect]
     Dosage: 20 MG PO
     Route: 048
     Dates: start: 19980615
  4. TACROLIMUS [Suspect]
     Dosage: 4 MG PO
     Route: 048
     Dates: start: 20060628
  5. TOCILIZUMAB [Suspect]
     Indication: JUVENILE ARTHRITIS
     Dosage: 12 MG/KG WEEKLY IV
     Route: 042
     Dates: start: 20060809, end: 20060921
  6. TOCILIZUMAB [Suspect]
     Indication: JUVENILE ARTHRITIS
     Dosage: 8 MCG/KG WEEKLY IV
     Route: 042
     Dates: start: 20060921
  7. ASPIRIN [Concomitant]
  8. CYCLIZINE [Concomitant]
  9. LANSOPRAZOLE [Concomitant]
  10. NAPROXEN [Concomitant]
  11. SUCRALFATE [Concomitant]

REACTIONS (9)
  - CRYING [None]
  - DRUG ADMINISTRATION ERROR [None]
  - DRUG DISPENSING ERROR [None]
  - EMOTIONAL DISTRESS [None]
  - HEART RATE INCREASED [None]
  - HYPERTENSION [None]
  - RASH MACULAR [None]
  - RESPIRATORY RATE INCREASED [None]
  - VOMITING [None]
